FAERS Safety Report 9539505 (Version 1)
Quarter: 2013Q3

REPORT INFORMATION
  Report Type: Spontaneous
  Country: GB (occurrence: GB)
  Receive Date: 20130920
  Receipt Date: 20130920
  Transmission Date: 20140515
  Serious: Yes (Hospitalization)
  Sender: FDA-Public Use
  Company Number: GB-ASTRAZENECA-2013SE69313

PATIENT
  Age: 80 Year
  Sex: Female

DRUGS (3)
  1. BRILIQUE [Suspect]
     Indication: ACUTE MYOCARDIAL INFARCTION
     Route: 048
     Dates: start: 2013, end: 2013
  2. ASPIRIN [Concomitant]
  3. OTHER MEDICATION [Concomitant]

REACTIONS (3)
  - Pulmonary oedema [Unknown]
  - Myocardial infarction [Unknown]
  - Dyspnoea [Unknown]
